FAERS Safety Report 23180215 (Version 1)
Quarter: 2023Q4

REPORT INFORMATION
  Report Type: Spontaneous
  Country: US (occurrence: US)
  Receive Date: 20231114
  Receipt Date: 20231114
  Transmission Date: 20240109
  Serious: No
  Sender: FDA-Public Use
  Company Number: US-AMGEN-USASP2023200218

PATIENT
  Age: 63 Year
  Sex: Female

DRUGS (4)
  1. REPATHA [Suspect]
     Active Substance: EVOLOCUMAB
     Indication: Low density lipoprotein increased
     Dosage: 140 MILLIGRAM/ML
     Route: 058
     Dates: start: 20231106, end: 20231108
  2. REPATHA [Suspect]
     Active Substance: EVOLOCUMAB
     Dosage: 140 MILLIGRAM/ML
     Route: 058
  3. LEVOTHYROXINE [Concomitant]
     Active Substance: LEVOTHYROXINE
     Indication: Hypothyroidism
  4. EPIPEN [Concomitant]
     Active Substance: EPINEPHRINE

REACTIONS (7)
  - Epistaxis [Unknown]
  - Abdominal distension [Unknown]
  - Upper-airway cough syndrome [Unknown]
  - Cough [Unknown]
  - Injection site urticaria [Unknown]
  - Swollen tongue [Unknown]
  - Injection site pruritus [Unknown]

NARRATIVE: CASE EVENT DATE: 20231107
